FAERS Safety Report 15401179 (Version 1)
Quarter: 2018Q3

REPORT INFORMATION
  Report Type: Spontaneous
  Country: US (occurrence: AX)
  Receive Date: 20180914
  Receipt Date: 20180914
  Transmission Date: 20181010
  Serious: Yes (Hospitalization)
  Sender: FDA-Public Use
  Company Number: None

PATIENT
  Age: 54 Year
  Sex: Male

DRUGS (2)
  1. TESTOPEL [Suspect]
     Active Substance: TESTOSTERONE
     Indication: TESTICULAR FAILURE
     Dosage: ?          OTHER FREQUENCY:Q2M;?
     Route: 058
     Dates: start: 20151107
  2. CIALIS [Concomitant]
     Active Substance: TADALAFIL

REACTIONS (1)
  - Cellulitis [None]

NARRATIVE: CASE EVENT DATE: 20180814
